FAERS Safety Report 15576144 (Version 1)
Quarter: 2018Q4

REPORT INFORMATION
  Report Type: Spontaneous
  Country: US (occurrence: US)
  Receive Date: 20181101
  Receipt Date: 20181101
  Transmission Date: 20190205
  Serious: No
  Sender: FDA-Public Use
  Company Number: US-MIST-TIR-2018-0396

PATIENT
  Age: 48 Year
  Sex: Male
  Weight: 107.6 kg

DRUGS (4)
  1. UNSPECIFIED BLOOD PRESSURE PILL [Concomitant]
     Indication: BLOOD PRESSURE MEASUREMENT
  2. TIROSINT [Suspect]
     Active Substance: LEVOTHYROXINE SODIUM
     Dosage: 88MCG DAILY
     Route: 048
     Dates: start: 201804, end: 2018
  3. UNSPECIFIED CHOLESTEROL PILL [Concomitant]
     Indication: BLOOD CHOLESTEROL
  4. TIROSINT [Suspect]
     Active Substance: LEVOTHYROXINE SODIUM
     Indication: AUTOIMMUNE THYROIDITIS
     Dosage: 88MCG DAILY
     Route: 048
     Dates: start: 201802, end: 20180410

REACTIONS (8)
  - Arthralgia [Unknown]
  - Pain [Recovering/Resolving]
  - Bone pain [Unknown]
  - Asthenia [Unknown]
  - Thyroid function test abnormal [Unknown]
  - Malaise [Recovering/Resolving]
  - Myalgia [Unknown]
  - Influenza like illness [Unknown]

NARRATIVE: CASE EVENT DATE: 2018
